FAERS Safety Report 8502059-9 (Version None)
Quarter: 2012Q2

REPORT INFORMATION
  Report Type: 
  Country: None (occurrence: None)
  Receive Date: 20120405
  Receipt Date: 20100726
  Transmission Date: 20120825
  Serious: Yes (Hospitalization)
  Sender: FDA-Public Use
  Company Number: PHHY2010US48565

PATIENT
  Age: 58 Year
  Sex: Female
  Weight: 52.2 kg

DRUGS (1)
  1. RECLAST [Suspect]
     Indication: OSTEOPOROSIS
     Dosage: 5 MG/ YEAR, INTRAVENOUS
     Route: 042
     Dates: start: 20100721

REACTIONS (5)
  - HYPOAESTHESIA [None]
  - PANIC REACTION [None]
  - DIZZINESS [None]
  - BLOOD PRESSURE DECREASED [None]
  - SLOW RESPONSE TO STIMULI [None]
